FAERS Safety Report 7549451-7 (Version None)
Quarter: 2011Q2

REPORT INFORMATION
  Report Type: 
  Country: None (occurrence: None)
  Receive Date: 20110615
  Receipt Date: 20041102
  Transmission Date: 20111010
  Serious: Yes (Other)
  Sender: FDA-Public Use
  Company Number: PHFR2004GB03913

PATIENT
  Sex: Male

DRUGS (2)
  1. CLOZAPINE [Suspect]
     Indication: SCHIZOPHRENIA
     Route: 048
     Dates: start: 20041011
  2. ANADIN /OLD FORM/                       /UNK/ [Concomitant]
     Route: 065

REACTIONS (6)
  - BLOOD PRESSURE FLUCTUATION [None]
  - BLOOD PRESSURE INCREASED [None]
  - PULSE ABNORMAL [None]
  - ANXIETY [None]
  - HEART RATE INCREASED [None]
  - HAEMOPTYSIS [None]
